FAERS Safety Report 6979557-2 (Version None)
Quarter: 2010Q3

REPORT INFORMATION
  Report Type: 
  Country: None (occurrence: None)
  Receive Date: 20100910
  Receipt Date: 20100910
  Transmission Date: 20110219
  Serious: No
  Sender: FDA-Public Use
  Company Number: None

PATIENT
  Sex: Male
  Weight: 86.6 kg

DRUGS (1)
  1. ZOLPIDEM TARTRATE 10MG TAB PREPAK/MYLAN [Suspect]
     Indication: INSOMNIA
     Dosage: 10 MG QBED PO
     Route: 048
     Dates: start: 20091029, end: 20091207

REACTIONS (2)
  - DRUG EFFECT DECREASED [None]
  - PRODUCT SUBSTITUTION ISSUE [None]
